FAERS Safety Report 8314351-1 (Version None)
Quarter: 2012Q2

REPORT INFORMATION
  Report Type: 
  Country: None (occurrence: None)
  Receive Date: 20120426
  Receipt Date: 20120412
  Transmission Date: 20120825
  Serious: Yes (Hospitalization, Other)
  Sender: FDA-Public Use
  Company Number: GB-ROCHE-1059030

PATIENT
  Sex: Male
  Weight: 65 kg

DRUGS (7)
  1. AVASTIN [Suspect]
     Indication: GASTRIC CANCER
     Dates: start: 20111212
  2. CISPLATIN [Suspect]
     Indication: GASTRIC CANCER
     Route: 042
     Dates: start: 20111212
  3. LANSOPRAZOLE [Concomitant]
     Dosage: ROUTE: NG
     Dates: start: 20111212, end: 20120110
  4. ONDANSETRON [Concomitant]
     Dosage: NG
     Dates: start: 20111222, end: 20120130
  5. METOCLOPRAMIDE [Concomitant]
     Dosage: ROUTE: NG
     Dates: start: 20120104, end: 20120130
  6. XELODA [Suspect]
     Indication: GASTRIC CANCER
     Dates: start: 20111212
  7. EPIRUBICIN HYDROCHLORIDE [Suspect]
     Indication: GASTRIC CANCER
     Route: 042
     Dates: start: 20111212

REACTIONS (2)
  - WOUND COMPLICATION [None]
  - PULMONARY EMBOLISM [None]
